FAERS Safety Report 5893024-9 (Version None)
Quarter: 2008Q3

REPORT INFORMATION
  Report Type: 
  Country: None (occurrence: None)
  Receive Date: 20080923
  Receipt Date: 20070410
  Transmission Date: 20090109
  Serious: No
  Sender: FDA-Public Use
  Company Number: US-ASTRAZENECA-2007UW02057

PATIENT
  Age: 441 Month
  Sex: Male
  Weight: 95.5 kg

DRUGS (4)
  1. SEROQUEL [Suspect]
     Indication: SCHIZOPHRENIA
     Route: 048
     Dates: start: 20010101, end: 20060101
  2. ABILIFY [Concomitant]
     Dates: start: 20060101
  3. HALDOL [Concomitant]
     Dates: start: 20060101
  4. RISPERDAL [Concomitant]
     Dates: start: 19990101

REACTIONS (3)
  - BLOOD CHOLESTEROL INCREASED [None]
  - OBESITY [None]
  - TYPE 2 DIABETES MELLITUS [None]
